FAERS Safety Report 4915656-4 (Version None)
Quarter: 2006Q1

REPORT INFORMATION
  Report Type: 
  Country: None (occurrence: None)
  Receive Date: 20060214
  Receipt Date: 20060130
  Transmission Date: 20060701
  Serious: Yes (Other)
  Sender: FDA-Public Use
  Company Number: A-US2004-06632

PATIENT
  Age: 19 Year
  Sex: Female
  Weight: 42.3 kg

DRUGS (8)
  1. TRACLEER [Suspect]
     Indication: PULMONARY HYPERTENSION
     Dosage: 125 MG, BID, ORAL; 62.5 MG, BID, ORAL
     Route: 048
     Dates: start: 20021022, end: 20021219
  2. TRACLEER [Suspect]
     Indication: PULMONARY HYPERTENSION
     Dosage: 125 MG, BID, ORAL; 62.5 MG, BID, ORAL
     Route: 048
     Dates: start: 20021220, end: 20040331
  3. DIGOXIN (DIOXIN) [Concomitant]
  4. COUMADIN [Concomitant]
  5. ZITHROMAX [Concomitant]
  6. ZYRTEC [Concomitant]
  7. OXYGEN (OXYGEN) [Concomitant]
  8. ASPIRIN  BAYER (ACETYLSLICYLIC ACID) [Concomitant]

REACTIONS (5)
  - ALANINE AMINOTRANSFERASE INCREASED [None]
  - ASPARTATE AMINOTRANSFERASE INCREASED [None]
  - BLOOD ALKALINE PHOSPHATASE INCREASED [None]
  - GAMMA-GLUTAMYLTRANSFERASE INCREASED [None]
  - LIPASE INCREASED [None]
